FAERS Safety Report 22311969 (Version 1)
Quarter: 2023Q2

REPORT INFORMATION
  Report Type: Report from Study
  Country: CA (occurrence: CA)
  Receive Date: 20230512
  Receipt Date: 20230512
  Transmission Date: 20230722
  Serious: Yes (Other)
  Sender: FDA-Public Use
  Company Number: CA-CELLTRION INC.-2023CA009751

PATIENT

DRUGS (2)
  1. TRUXIMA [Suspect]
     Active Substance: RITUXIMAB-ABBS
     Indication: Encephalitis autoimmune
     Dosage: 1000 MG, 2 DOSE 2 WEEKS APART EVERY 6 MONTHS (8 CYCLES); 375 MG/M2
  2. TRUXIMA [Suspect]
     Active Substance: RITUXIMAB-ABBS
     Dosage: 1000 MG, 2 DOSE 2 WEEKS APART EVERY 6 MONTHS (8 CYCLES)

REACTIONS (2)
  - Encephalitis autoimmune [Unknown]
  - Off label use [Unknown]
